FAERS Safety Report 19131467 (Version 1)
Quarter: 2021Q2

REPORT INFORMATION
  Report Type: Spontaneous
  Country: AT (occurrence: AT)
  Receive Date: 20210413
  Receipt Date: 20210413
  Transmission Date: 20210717
  Serious: Yes (Other)
  Sender: FDA-Public Use
  Company Number: AT-PFIZER INC-2021363706

PATIENT
  Age: 23 Year
  Sex: Male

DRUGS (14)
  1. TEMESTA (LORAZEPAM) [Suspect]
     Active Substance: LORAZEPAM
     Indication: SCHIZOPHRENIA
     Dosage: 2.25 MG
     Route: 065
     Dates: end: 20201218
  2. ABILIFY [Suspect]
     Active Substance: ARIPIPRAZOLE
     Indication: SCHIZOPHRENIA
     Dosage: 15 MG
     Route: 065
     Dates: start: 20210112, end: 202101
  3. RISPERDAL [Suspect]
     Active Substance: RISPERIDONE
     Dosage: 1.5 MG
     Route: 065
     Dates: start: 20210116, end: 20210122
  4. MIRTAZAPINE. [Suspect]
     Active Substance: MIRTAZAPINE
     Indication: SCHIZOPHRENIA
     Dosage: 15 MG
     Route: 065
     Dates: start: 20201217, end: 20210107
  5. TRITTICO [Suspect]
     Active Substance: TRAZODONE HYDROCHLORIDE
     Indication: SCHIZOPHRENIA
     Dosage: 100 MG
     Route: 065
     Dates: start: 20201107, end: 20201204
  6. RISPERDAL [Suspect]
     Active Substance: RISPERIDONE
     Dosage: 5 MG
     Route: 065
     Dates: start: 20201125, end: 20201128
  7. TEMESTA (LORAZEPAM) [Suspect]
     Active Substance: LORAZEPAM
     Dosage: 2 MG
     Route: 065
     Dates: start: 20201219
  8. RISPERDAL [Suspect]
     Active Substance: RISPERIDONE
     Indication: SCHIZOPHRENIA
     Dosage: 4 MG
     Route: 065
     Dates: start: 20201121, end: 20201124
  9. RISPERDAL [Suspect]
     Active Substance: RISPERIDONE
     Dosage: 6 MG
     Route: 065
     Dates: start: 20201129, end: 20210108
  10. RISPERDAL [Suspect]
     Active Substance: RISPERIDONE
     Dosage: 3 MG
     Route: 065
     Dates: start: 20210112, end: 20210115
  11. TRITTICO [Suspect]
     Active Substance: TRAZODONE HYDROCHLORIDE
     Dosage: 150 MG
     Route: 065
     Dates: start: 20201205, end: 20201219
  12. RISPERDAL [Suspect]
     Active Substance: RISPERIDONE
     Dosage: 4.5 MG
     Route: 065
     Dates: start: 20210109, end: 20210111
  13. ABILIFY [Suspect]
     Active Substance: ARIPIPRAZOLE
     Dosage: 10 MG
     Route: 065
     Dates: start: 20210109, end: 20210111
  14. AKINETON [Suspect]
     Active Substance: BIPERIDEN HYDROCHLORIDE
     Indication: SCHIZOPHRENIA
     Dosage: 4 MG
     Route: 065
     Dates: start: 20201202, end: 20210122

REACTIONS (1)
  - Nasal obstruction [Recovering/Resolving]

NARRATIVE: CASE EVENT DATE: 20201217
